FAERS Safety Report 14803689 (Version 2)
Quarter: 2018Q2

REPORT INFORMATION
  Report Type: Report from Study
  Country: US (occurrence: US)
  Receive Date: 20180425
  Receipt Date: 20180606
  Transmission Date: 20180711
  Serious: Yes (Other)
  Sender: FDA-Public Use
  Company Number: US-AMGEN-USASL2018054964

PATIENT
  Age: 62 Year
  Sex: Female

DRUGS (1)
  1. KYPROLIS [Suspect]
     Active Substance: CARFILZOMIB
     Indication: PLASMA CELL MYELOMA
     Dosage: UNK, TWICE A WEEK FOR TWO WEEKS THEN ONE WEEK OFF
     Route: 042

REACTIONS (5)
  - Arthralgia [Unknown]
  - Anaphylactic reaction [Unknown]
  - Muscle spasms [Unknown]
  - Bone lesion [Unknown]
  - Off label use [Unknown]
